FAERS Safety Report 24708577 (Version 2)
Quarter: 2025Q1

REPORT INFORMATION
  Report Type: Report from Study
  Country: US (occurrence: US)
  Receive Date: 20241207
  Receipt Date: 20250109
  Transmission Date: 20250408
  Serious: Yes (Hospitalization, Other)
  Sender: ABBVIE
  Company Number: US-ABBVIE-6033663

PATIENT
  Age: 82 Year
  Sex: Male
  Weight: 76.657 kg

DRUGS (4)
  1. VENETOCLAX [Suspect]
     Active Substance: VENETOCLAX
     Indication: Chronic lymphocytic leukaemia
     Dosage: FORM STRENGTH: 100MG
     Route: 048
  2. LEXAPRO [Concomitant]
     Active Substance: ESCITALOPRAM OXALATE
     Indication: Depression
  3. LAMISIL [Concomitant]
     Active Substance: TERBINAFINE HYDROCHLORIDE
     Indication: Onychomycosis
  4. KEPPRA [Concomitant]
     Active Substance: LEVETIRACETAM
     Indication: Seizure

REACTIONS (8)
  - Blood pressure decreased [Recovered/Resolved]
  - Electrolyte imbalance [Recovered/Resolved]
  - Dysarthria [Unknown]
  - Conduction disorder [Recovered/Resolved]
  - Loss of consciousness [Recovered/Resolved]
  - Loss of consciousness [Recovered/Resolved]
  - Venous thrombosis [Recovered/Resolved]
  - Balance disorder [Recovered/Resolved]

NARRATIVE: CASE EVENT DATE: 20231001
